FAERS Safety Report 25883209 (Version 2)
Quarter: 2025Q4

REPORT INFORMATION
  Report Type: Spontaneous
  Country: EU (occurrence: EU)
  Receive Date: 20251006
  Receipt Date: 20251118
  Transmission Date: 20260117
  Serious: Yes (Other)
  Sender: ROCHE
  Company Number: CH-ROCHE-10000398872

PATIENT
  Age: 21 Year
  Sex: Female
  Weight: 55 kg

DRUGS (12)
  1. RITUXIMAB [Suspect]
     Active Substance: RITUXIMAB
     Indication: Castleman^s disease
     Route: 065
  2. BORTEZOMIB [Suspect]
     Active Substance: BORTEZOMIB
     Indication: Plasma cell myeloma
     Route: 065
  3. LENALIDOMIDE [Suspect]
     Active Substance: LENALIDOMIDE
     Indication: Plasma cell myeloma
     Route: 065
  4. BENDAMUSTINE [Suspect]
     Active Substance: BENDAMUSTINE
     Indication: Plasma cell myeloma
     Route: 065
  5. DEXAMETHASONE [Suspect]
     Active Substance: DEXAMETHASONE
     Indication: Plasma cell myeloma
     Route: 065
  6. DEXAMETHASONE [Suspect]
     Active Substance: DEXAMETHASONE
     Dosage: FOR THE FIRST 2 WEEKS
     Route: 065
  7. DEXAMETHASONE [Suspect]
     Active Substance: DEXAMETHASONE
     Route: 065
  8. DARATUMUMAB [Suspect]
     Active Substance: DARATUMUMAB
     Indication: Plasma cell myeloma
     Route: 058
  9. DARATUMUMAB [Suspect]
     Active Substance: DARATUMUMAB
     Route: 058
  10. VENETOCLAX [Concomitant]
     Active Substance: VENETOCLAX
     Indication: Plasma cell myeloma
     Dosage: ON DAY 4-6
     Route: 048
  11. VENETOCLAX [Concomitant]
     Active Substance: VENETOCLAX
     Dosage: DAY 4-6
     Route: 048
  12. VENETOCLAX [Concomitant]
     Active Substance: VENETOCLAX
     Dosage: ON DAY 1-3
     Route: 048

REACTIONS (6)
  - Peritonitis bacterial [Unknown]
  - Oedema [Unknown]
  - Pleural effusion [Unknown]
  - Ascites [Recovering/Resolving]
  - Acute kidney injury [Unknown]
  - Neutropenia [Unknown]
